FAERS Safety Report 9294262 (Version 2)
Quarter: 2013Q4

REPORT INFORMATION
  Report Type: Spontaneous
  Country: US (occurrence: None)
  Receive Date: 20121227
  Receipt Date: 20131224
  Transmission Date: 20140711
  Serious: Yes (Other)
  Sender: FDA-Public Use
  Company Number: PHEH2012US017571

PATIENT
  Age: 32 Year
  Sex: Male
  Weight: 89.8 kg

DRUGS (5)
  1. CLOZARIL (CLOZAPINE) UNKNOWN [Suspect]
     Indication: SCHIZOPHRENIA, PARANOID TYPE
     Route: 048
  2. CLOZAPINE (CLOZAPINE) [Suspect]
     Dosage: UNK, UKN, UNK
  3. BENZTROPINE (BENZATROPINE MESILATE) [Concomitant]
  4. DEPAKOTE ER (VALPROATE SEMISODIUM) [Concomitant]
  5. SEROQUEL (QUETIAPINE FUMARATE) [Concomitant]

REACTIONS (2)
  - Neutrophil count decreased [None]
  - Neutrophil count increased [None]
